FAERS Safety Report 20298886 (Version 1)
Quarter: 2022Q1

REPORT INFORMATION
  Report Type: Spontaneous
  Country: FR (occurrence: FR)
  Receive Date: 20220105
  Receipt Date: 20220105
  Transmission Date: 20220423
  Serious: Yes (Other)
  Sender: FDA-Public Use
  Company Number: None

PATIENT

DRUGS (7)
  1. OSILODROSTAT [Suspect]
     Active Substance: OSILODROSTAT
     Indication: Adrenocortical carcinoma
     Dosage: UNKNOWN
     Route: 065
     Dates: start: 20210901
  2. OSILODROSTAT [Suspect]
     Active Substance: OSILODROSTAT
     Indication: Cushing^s syndrome
  3. SPIRONOLACTONE [Suspect]
     Active Substance: SPIRONOLACTONE
     Indication: Product used for unknown indication
     Dosage: UNK
     Route: 048
     Dates: start: 20210901
  4. MITOTANE [Suspect]
     Active Substance: MITOTANE
     Indication: Adrenocortical carcinoma
     Dosage: UNK
     Route: 048
     Dates: start: 20210901
  5. MITOTANE [Suspect]
     Active Substance: MITOTANE
     Indication: Cushing^s syndrome
  6. NICARDIPINE HYDROCHLORIDE [Suspect]
     Active Substance: NICARDIPINE HYDROCHLORIDE
     Indication: Product used for unknown indication
     Dosage: UNK
     Route: 042
     Dates: start: 20210910
  7. LEVOTHYROXINE [Suspect]
     Active Substance: LEVOTHYROXINE
     Indication: Product used for unknown indication
     Dosage: UNK
     Route: 042
     Dates: start: 20210908

REACTIONS (1)
  - Hepatic cytolysis [Unknown]

NARRATIVE: CASE EVENT DATE: 20210912
